FAERS Safety Report 14263165 (Version 2)
Quarter: 2017Q4

REPORT INFORMATION
  Report Type: Spontaneous
  Country: IT (occurrence: IT)
  Receive Date: 20171208
  Receipt Date: 20171226
  Transmission Date: 20180321
  Serious: Yes (Death, Other)
  Sender: FDA-Public Use
  Company Number: IT-JNJFOC-20171210316

PATIENT
  Age: 32 Year
  Sex: Female

DRUGS (3)
  1. DOXORUBICIN HYDROCHLORIDE. [Suspect]
     Active Substance: DOXORUBICIN HYDROCHLORIDE
     Indication: LEIOMYOSARCOMA
     Route: 042
  2. LARTRUVO [Suspect]
     Active Substance: OLARATUMAB
     Indication: LEIOMYOSARCOMA
     Route: 042
     Dates: start: 201710
  3. DOXORUBICIN HYDROCHLORIDE. [Suspect]
     Active Substance: DOXORUBICIN HYDROCHLORIDE
     Indication: LEIOMYOSARCOMA
     Route: 042

REACTIONS (8)
  - Pancytopenia [Fatal]
  - Off label use [Unknown]
  - Renal failure [Fatal]
  - Hyperbilirubinaemia [Fatal]
  - Hepatic function abnormal [Unknown]
  - Product use in unapproved indication [Unknown]
  - Metastasis [Fatal]
  - Tumour lysis syndrome [Fatal]
